FAERS Safety Report 13529216 (Version 1)
Quarter: 2017Q2

REPORT INFORMATION
  Report Type: Spontaneous
  Country: US (occurrence: US)
  Receive Date: 20170509
  Receipt Date: 20170509
  Transmission Date: 20170830
  Serious: No
  Sender: FDA-Public Use
  Company Number: US-ROCHE-GNE295407

PATIENT
  Age: 48 Year
  Sex: Female
  Weight: 67.65 kg

DRUGS (2)
  1. ANTIASTHMATIC DRUG NOS [Concomitant]
     Indication: PRODUCT USED FOR UNKNOWN INDICATION
  2. XOLAIR [Suspect]
     Active Substance: OMALIZUMAB
     Indication: BRONCHOSPASM
     Dosage: UNK
     Route: 065
     Dates: start: 20081203, end: 20091225

REACTIONS (1)
  - Erythema nodosum [Not Recovered/Not Resolved]

NARRATIVE: CASE EVENT DATE: 20091025
